FAERS Safety Report 7190447-5 (Version None)
Quarter: 2010Q4

REPORT INFORMATION
  Report Type: 
  Country: None (occurrence: None)
  Receive Date: 20101223
  Receipt Date: 20101220
  Transmission Date: 20110411
  Serious: Yes (Death)
  Sender: FDA-Public Use
  Company Number: AU-NAPPMUNDI-GBR-2010-0007492

PATIENT
  Age: 56 Year
  Sex: Female

DRUGS (5)
  1. MORPHINE SULFATE [Suspect]
     Indication: PRODUCT USED FOR UNKNOWN INDICATION
  2. SERTRALINE [Interacting]
  3. TRAMADOL [Interacting]
  4. METOCLOPRAMIDE [Interacting]
  5. PROMETHAZINE [Interacting]

REACTIONS (1)
  - DEATH [None]
